FAERS Safety Report 15962347 (Version 8)
Quarter: 2019Q3

REPORT INFORMATION
  Report Type: Spontaneous
  Country: US (occurrence: US)
  Receive Date: 20190214
  Receipt Date: 20190701
  Transmission Date: 20191004
  Serious: Yes (Other)
  Sender: FDA-Public Use
  Company Number: US-PFIZER INC-2019058103

PATIENT
  Age: 53 Year
  Sex: Male
  Weight: 104 kg

DRUGS (2)
  1. VIAGRA [Suspect]
     Active Substance: SILDENAFIL CITRATE
     Indication: ERECTILE DYSFUNCTION
     Dosage: 100 MG, (TAKE 2-3 TIME PER WEEK )
     Route: 048
  2. VIAGRA [Suspect]
     Active Substance: SILDENAFIL CITRATE
     Dosage: 100 MG, UNK
     Dates: start: 2018

REACTIONS (5)
  - Drug ineffective [Not Recovered/Not Resolved]
  - Diabetes mellitus [Unknown]
  - Prescription drug used without a prescription [Unknown]
  - Back pain [Unknown]
  - Hypertension [Unknown]

NARRATIVE: CASE EVENT DATE: 20180214
